FAERS Safety Report 6938402-1 (Version None)
Quarter: 2010Q3

REPORT INFORMATION
  Report Type: 
  Country: None (occurrence: None)
  Receive Date: 20100824
  Receipt Date: 20100812
  Transmission Date: 20110219
  Serious: Yes (Hospitalization, Other)
  Sender: FDA-Public Use
  Company Number: US-PFIZER INC-2010045195

PATIENT
  Sex: Female

DRUGS (7)
  1. CHANTIX [Suspect]
     Indication: SMOKING CESSATION THERAPY
     Dosage: CHANTIX STARTER PACK, CHANTIX 1 MG CONTINUING MONTH PACK
     Dates: start: 20081101, end: 20090101
  2. LOPERAMIDE [Concomitant]
     Indication: ANTIDIARRHOEAL SUPPORTIVE CARE
     Dosage: UNK
     Dates: start: 19920101
  3. LOPERAMIDE [Concomitant]
     Dosage: UNK
     Dates: start: 20060101, end: 20090101
  4. PATANOL [Concomitant]
     Indication: EYE ALLERGY
     Dosage: UNK
     Route: 047
     Dates: start: 20060101, end: 20090101
  5. BIAXIN [Concomitant]
     Indication: ANTIBIOTIC THERAPY
     Dosage: UNK
     Dates: start: 20060101, end: 20090101
  6. TESSALON [Concomitant]
     Indication: COUGH
     Dosage: UNK
     Dates: start: 20030101, end: 20090101
  7. TESSALON [Concomitant]
     Indication: NASAL CONGESTION

REACTIONS (8)
  - AGGRESSION [None]
  - AMNESIA [None]
  - ANXIETY [None]
  - DEPRESSION [None]
  - HALLUCINATIONS, MIXED [None]
  - MENTAL DISORDER [None]
  - PSYCHOTIC DISORDER [None]
  - SUICIDAL IDEATION [None]
